FAERS Safety Report 10210723 (Version 1)
Quarter: 2014Q2

REPORT INFORMATION
  Report Type: Spontaneous
  Country: CH (occurrence: CH)
  Receive Date: 20140602
  Receipt Date: 20140602
  Transmission Date: 20141212
  Serious: Yes (Other)
  Sender: FDA-Public Use
  Company Number: PHHY2014CH063592

PATIENT
  Age: 19 Year
  Sex: Female

DRUGS (2)
  1. MYCOPHENOLATE MOFETIL [Suspect]
     Dosage: 25000 MG (448.0 MG/KG)
     Route: 048
  2. ZOLPIDEM [Concomitant]

REACTIONS (2)
  - Suicide attempt [Unknown]
  - Intentional overdose [Unknown]
